FAERS Safety Report 10767544 (Version 2)
Quarter: 2015Q2

REPORT INFORMATION
  Report Type: Spontaneous
  Country: US (occurrence: US)
  Receive Date: 20150205
  Receipt Date: 20150507
  Transmission Date: 20150821
  Serious: No
  Sender: FDA-Public Use
  Company Number: US-PFIZER INC-2015046038

PATIENT
  Age: 43 Year
  Sex: Female

DRUGS (1)
  1. NEURONTIN [Suspect]
     Active Substance: GABAPENTIN
     Indication: PAIN
     Dosage: 100 MG, DAILY (100 MG AT HS)
     Route: 048
     Dates: start: 2006, end: 20061205

REACTIONS (2)
  - Fatigue [Recovered/Resolved]
  - Drug hypersensitivity [Unknown]
